FAERS Safety Report 9850127 (Version 1)
Quarter: 2013Q4

REPORT INFORMATION
  Report Type: Spontaneous
  Country: US (occurrence: None)
  Receive Date: 20131226
  Receipt Date: 20131226
  Transmission Date: 20140711
  Serious: Yes (Other)
  Sender: FDA-Public Use
  Company Number: PHEH2012US023681

PATIENT
  Sex: Male

DRUGS (2)
  1. SANDOSTATIN [Suspect]
     Indication: MALIGNANT NEOPLASM PROGRESSION
  2. SANDOSTATIN [Suspect]
     Indication: CARCINOID TUMOUR

REACTIONS (1)
  - Malignant neoplasm progression [None]
